FAERS Safety Report 7630806-7 (Version None)
Quarter: 2011Q3

REPORT INFORMATION
  Report Type: 
  Country: None (occurrence: None)
  Receive Date: 20110723
  Receipt Date: 20110714
  Transmission Date: 20111222
  Serious: Yes (Other)
  Sender: FDA-Public Use
  Company Number: GB-ABBOTT-11P-167-0734682-00

PATIENT
  Age: 51 Year
  Sex: Female

DRUGS (10)
  1. DEXAMETHASONE [Interacting]
     Indication: UVEITIS
     Route: 047
  2. DEXAMETHASONE [Interacting]
     Indication: CYTOMEGALOVIRUS CHORIORETINITIS
  3. BETAMETHASONE [Interacting]
     Indication: UVEITIS
     Dosage: AT NIGHT BOTH EYES
     Route: 047
  4. TRUVADA [Concomitant]
     Indication: HIV INFECTION
  5. NORVIR [Suspect]
     Indication: HIV INFECTION
  6. TENOFOVIR DISOPROXIL FUMARATE [Concomitant]
     Indication: HIV INFECTION
  7. BETAMETHASONE [Interacting]
     Indication: CYTOMEGALOVIRUS CHORIORETINITIS
  8. DEXAMETHASONE [Interacting]
     Indication: CYSTOID MACULAR OEDEMA
  9. BETAMETHASONE [Interacting]
     Indication: CYSTOID MACULAR OEDEMA
  10. ATAZANAVIR [Concomitant]
     Indication: HIV INFECTION

REACTIONS (7)
  - OSTEONECROSIS [None]
  - DRUG INTERACTION [None]
  - BLOOD CORTICOTROPHIN DECREASED [None]
  - CUSHING'S SYNDROME [None]
  - ADRENAL SUPPRESSION [None]
  - ACTH STIMULATION TEST ABNORMAL [None]
  - WEIGHT INCREASED [None]
